FAERS Safety Report 13092192 (Version 1)
Quarter: 2017Q1

REPORT INFORMATION
  Report Type: Spontaneous
  Country: US (occurrence: US)
  Receive Date: 20170105
  Receipt Date: 20170105
  Transmission Date: 20170428
  Serious: Yes (Hospitalization)
  Sender: FDA-Public Use
  Company Number: None

PATIENT
  Age: 84 Year
  Sex: Male
  Weight: 64.13 kg

DRUGS (14)
  1. POTASSIUM CITRATE. [Concomitant]
     Active Substance: POTASSIUM CITRATE
  2. LEVOTHYROXINE. [Concomitant]
     Active Substance: LEVOTHYROXINE
  3. PALBOCICLIB [Suspect]
     Active Substance: PALBOCICLIB
     Indication: SQUAMOUS CELL CARCINOMA OF HEAD AND NECK
     Dosage: FREQUENCY - QD DAYS 1-21
     Route: 048
     Dates: start: 20161109, end: 20161129
  4. COSOPT [Concomitant]
     Active Substance: DORZOLAMIDE HYDROCHLORIDE\TIMOLOL MALEATE
  5. MINOCYCLINE [Concomitant]
     Active Substance: MINOCYCLINE\MINOCYCLINE HYDROCHLORIDE
  6. SENNA [Concomitant]
     Active Substance: SENNA LEAF\SENNOSIDES\SENNOSIDES A AND B
  7. CETUXIMAB. [Suspect]
     Active Substance: CETUXIMAB
     Indication: SQUAMOUS CELL CARCINOMA OF HEAD AND NECK
     Dosage: DOSE - 250 MG/M2 WEEKLY, IV
     Route: 042
     Dates: start: 20161109, end: 20161219
  8. ASPIRIN. [Concomitant]
     Active Substance: ASPIRIN
  9. POLYETHYLENE GLYCOL [Concomitant]
     Active Substance: POLYETHYLENE GLYCOLS
  10. XALATAN [Concomitant]
     Active Substance: LATANOPROST
  11. MUCINEX [Concomitant]
     Active Substance: GUAIFENESIN
  12. PROCHLORPERAZINE. [Concomitant]
     Active Substance: PROCHLORPERAZINE
  13. TOPROL XL [Concomitant]
     Active Substance: METOPROLOL SUCCINATE
  14. FAMOTIDINE. [Concomitant]
     Active Substance: FAMOTIDINE

REACTIONS (11)
  - Dysphagia [None]
  - Dyspnoea [None]
  - Stoma site discharge [None]
  - Malaise [None]
  - Asthenia [None]
  - Abdominal pain [None]
  - Constipation [None]
  - Stoma obstruction [None]
  - Fatigue [None]
  - Thrombocytopenia [None]
  - Lethargy [None]

NARRATIVE: CASE EVENT DATE: 20161220
